FAERS Safety Report 25984821 (Version 1)
Quarter: 2025Q4

REPORT INFORMATION
  Report Type: Spontaneous
  Country: JP (occurrence: JP)
  Receive Date: 20251031
  Receipt Date: 20251031
  Transmission Date: 20260117
  Serious: Yes (Life-Threatening, Hospitalization, Other)
  Sender: BAYER HEALTHCARE PHARMACEUTICALS INC.
  Company Number: JP-BAYER-2025A127732

PATIENT
  Age: 32 Year
  Sex: Female
  Weight: 82 kg

DRUGS (15)
  1. YAZ [Suspect]
     Active Substance: DROSPIRENONE\ETHINYL ESTRADIOL
     Indication: Dysmenorrhoea
     Dosage: 1 DF, QD
     Route: 048
     Dates: start: 20200427, end: 20200520
  2. YAZ [Suspect]
     Active Substance: DROSPIRENONE\ETHINYL ESTRADIOL
     Indication: Menstruation irregular
  3. YAZ [Suspect]
     Active Substance: DROSPIRENONE\ETHINYL ESTRADIOL
     Indication: Premenstrual dysphoric disorder
  4. PREMARIN [Suspect]
     Active Substance: ESTROGENS, CONJUGATED
     Indication: Ovarian failure
     Dosage: 1 DF, QD
     Route: 048
     Dates: start: 20180216, end: 20200313
  5. PREMARIN [Suspect]
     Active Substance: ESTROGENS, CONJUGATED
     Indication: Menstruation irregular
  6. ETHINYL ESTRADIOL\NORGESTREL [Suspect]
     Active Substance: ETHINYL ESTRADIOL\NORGESTREL
     Indication: Menstruation irregular
     Dosage: 1 DF, QD
     Route: 048
     Dates: start: 20190331, end: 20200320
  7. ETHINYL ESTRADIOL\NORETHINDRONE [Suspect]
     Active Substance: ETHINYL ESTRADIOL\NORETHINDRONE
     Indication: Premenstrual dysphoric disorder
     Dosage: 1 DF, QD
     Route: 048
     Dates: start: 20200320, end: 20200419
  8. ETHINYL ESTRADIOL\NORETHINDRONE [Suspect]
     Active Substance: ETHINYL ESTRADIOL\NORETHINDRONE
     Indication: Dysmenorrhoea
  9. LANSOPRAZOLE [Concomitant]
     Active Substance: LANSOPRAZOLE
     Dosage: 15 MG 1 TABLET ONCE A DAY, AFTER BREAKFAST
     Route: 048
  10. RISPERIDONE [Concomitant]
     Active Substance: RISPERIDONE
     Dosage: 1 MG 2 TABLETS THREE TIMES A DAY, AFTER LUNCH AND DINNER AND BEFORE SLEEP
     Route: 048
  11. REXULTI [Concomitant]
     Active Substance: BREXPIPRAZOLE
     Dosage: 1 MG 2 TABLETS ONCE A DAY, AFTER BREAKFAST
     Route: 048
  12. Diazepam towa [Concomitant]
     Dosage: 2, 1 TABLET TWICE A DAY, AFTER LUNCH AND DINNER
     Route: 048
  13. Diazepam towa [Concomitant]
     Dosage: 5, 1 TABLET ONCE A DAY, BEFORE SLEEP
     Route: 048
  14. AKINETON [Concomitant]
     Active Substance: BIPERIDEN HYDROCHLORIDE
     Dosage: 1 MG, 2 TABLETS THREE TIMES A DAY, AFTER BREAKFAST AND DINNER AND BEFORE SLEEP
     Route: 048
  15. PYRETHIA [Concomitant]
     Active Substance: PROMETHAZINE HYDROCHLORIDE
     Dosage: TWICE A DAY (25 MG 1 TABLET AFTER BREAKFAST AND 25 MG 2 TABLETS BEFORE SLEEP), 0-1-0-0-2-0 ADMINISTR
     Route: 048

REACTIONS (10)
  - Cardio-respiratory arrest [Recovered/Resolved]
  - Loss of consciousness [Recovered/Resolved]
  - Pulse abnormal [Recovered/Resolved]
  - Pulmonary hypertension [Recovering/Resolving]
  - Pulmonary embolism [Recovering/Resolving]
  - Dyspnoea [Recovering/Resolving]
  - Snoring [Recovered/Resolved]
  - Deep vein thrombosis [Recovering/Resolving]
  - Embolic cerebral infarction [Recovering/Resolving]
  - Aphasia [None]

NARRATIVE: CASE EVENT DATE: 20200527
